FAERS Safety Report 14536710 (Version 2)
Quarter: 2018Q2

REPORT INFORMATION
  Report Type: Report from Study
  Country: US (occurrence: US)
  Receive Date: 20180215
  Receipt Date: 20180620
  Transmission Date: 20180711
  Serious: Yes (Other)
  Sender: FDA-Public Use
  Company Number: PHEH2018US005551

PATIENT
  Sex: Male

DRUGS (2)
  1. ENTRESTO [Suspect]
     Active Substance: SACUBITRIL\VALSARTAN
     Indication: PRODUCT USED FOR UNKNOWN INDICATION
     Dosage: UNK
     Route: 048
  2. ENTRESTO [Suspect]
     Active Substance: SACUBITRIL\VALSARTAN
     Dosage: 0.5 DF, BID (HALF TABLET AT A.M AND HALF TABLET AT NIGHT)
     Route: 065

REACTIONS (6)
  - Hypotension [Unknown]
  - Wrong technique in product usage process [Unknown]
  - Pulmonary oedema [Unknown]
  - Neck injury [Unknown]
  - Drug prescribing error [Unknown]
  - Accident [Unknown]
